FAERS Safety Report 5197494-3 (Version None)
Quarter: 2006Q4

REPORT INFORMATION
  Report Type: 
  Country: None (occurrence: None)
  Receive Date: 20060926
  Receipt Date: 20051107
  Transmission Date: 20070319
  Serious: Yes (Hospitalization)
  Sender: FDA-Public Use
  Company Number: 2005153237

PATIENT
  Sex: Female

DRUGS (2)
  1. ADRIAMYCIN PFS [Suspect]
     Indication: ILL-DEFINED DISORDER
     Dosage: UNKNOWN (UNKNOWN), UNKNOWN
  2. TAXOTERE [Suspect]
     Indication: ILL-DEFINED DISORDER
     Dosage: UNKNOWN (UNKNOWN), UNKNOWN

REACTIONS (2)
  - CAECITIS [None]
  - SEPSIS [None]
